FAERS Safety Report 14149186 (Version 2)
Quarter: 2018Q4

REPORT INFORMATION
  Report Type: Spontaneous
  Country: US (occurrence: US)
  Receive Date: 20171101
  Receipt Date: 20181026
  Transmission Date: 20190204
  Serious: Yes (Life-Threatening, Hospitalization, Other)
  Sender: FDA-Public Use
  Company Number: US-SA-2017SA199498

PATIENT
  Age: 68 Year
  Sex: Male

DRUGS (9)
  1. VANCOMYCIN [Suspect]
     Active Substance: VANCOMYCIN
     Indication: ACINETOBACTER INFECTION
     Route: 065
  2. AZITHROMYCIN ANHYDROUS. [Suspect]
     Active Substance: AZITHROMYCIN ANHYDROUS
     Dosage: UNK UNK,UNK
     Route: 065
  3. MEROPENEM. [Suspect]
     Active Substance: MEROPENEM
     Indication: ACINETOBACTER INFECTION
     Dosage: UNK UNK,UNK
     Route: 065
  4. RIFAMPICIN [Suspect]
     Active Substance: RIFAMPIN
     Indication: ACINETOBACTER INFECTION
     Dosage: UNK UNK,UNK
     Route: 065
  5. COLISTIN SULFATE [Suspect]
     Active Substance: COLISTIN SULFATE
     Dosage: UNK UNK,UNK
     Route: 065
  6. FLUCONAZOLE. [Concomitant]
     Active Substance: FLUCONAZOLE
     Dosage: UNK
  7. COLISTIN SULFATE [Suspect]
     Active Substance: COLISTIN SULFATE
     Indication: ACINETOBACTER INFECTION
     Dosage: UNK UNK,UNK, ON DAY 36
     Route: 065
  8. AZITHROMYCIN ANHYDROUS. [Suspect]
     Active Substance: AZITHROMYCIN ANHYDROUS
     Indication: ACINETOBACTER INFECTION
     Dosage: UNK UNK,UNK,ON DAY 36
     Route: 065
  9. TIGECYCLINE. [Suspect]
     Active Substance: TIGECYCLINE
     Indication: ACINETOBACTER INFECTION
     Dosage: UNK UNK,UNK
     Route: 065

REACTIONS (13)
  - White blood cell count increased [Recovering/Resolving]
  - Hepatic function abnormal [Recovering/Resolving]
  - Renal impairment [Recovering/Resolving]
  - Blood creatinine increased [Recovering/Resolving]
  - Acinetobacter infection [Recovering/Resolving]
  - Delirium [Recovering/Resolving]
  - Respiratory failure [Recovering/Resolving]
  - Drug resistance [Unknown]
  - Hypotension [Recovering/Resolving]
  - Emphysematous cholecystitis [Recovering/Resolving]
  - Drug ineffective [Unknown]
  - Condition aggravated [Recovering/Resolving]
  - Unresponsive to stimuli [Recovering/Resolving]
